FAERS Safety Report 8490535-7 (Version None)
Quarter: 2012Q3

REPORT INFORMATION
  Report Type: 
  Country: None (occurrence: None)
  Receive Date: 20120705
  Receipt Date: 20120620
  Transmission Date: 20120928
  Serious: No
  Sender: FDA-Public Use
  Company Number: US-ASTRAZENECA-2012SE41879

PATIENT
  Age: 48 Year
  Sex: Male
  Weight: 70.3 kg

DRUGS (2)
  1. SEROQUEL XR [Suspect]
     Indication: MAJOR DEPRESSION
     Route: 048
     Dates: start: 20080101
  2. DOXEPIN [Suspect]
     Route: 065

REACTIONS (7)
  - DEPRESSION [None]
  - MUSCULOSKELETAL DISCOMFORT [None]
  - INJURY [None]
  - MEMORY IMPAIRMENT [None]
  - THERAPEUTIC RESPONSE UNEXPECTED [None]
  - CONVERSION DISORDER [None]
  - COGNITIVE DISORDER [None]
